FAERS Safety Report 9129824 (Version 1)
Quarter: 2013Q1

REPORT INFORMATION
  Report Type: Spontaneous
  Country: FR (occurrence: FR)
  Receive Date: 20130125
  Receipt Date: 20130125
  Transmission Date: 20140127
  Serious: Yes (Hospitalization)
  Sender: FDA-Public Use
  Company Number: FR-BRISTOL-MYERS SQUIBB COMPANY-17308644

PATIENT
  Age: 60 Year
  Sex: Female
  Weight: 90 kg

DRUGS (2)
  1. HYDREA CAPS 500 MG [Suspect]
     Indication: ESSENTIAL THROMBOCYTHAEMIA
     Route: 048
  2. PEGASYS [Suspect]
     Indication: ESSENTIAL THROMBOCYTHAEMIA
     Dosage: INJECTION,PREVIOUSLY TAKING 45 MICROGRAM
     Route: 058

REACTIONS (2)
  - Haemolytic anaemia [Not Recovered/Not Resolved]
  - Neutropenia [Recovered/Resolved]
